FAERS Safety Report 14111805 (Version 1)
Quarter: 2017Q4

REPORT INFORMATION
  Report Type: Spontaneous
  Country: FR (occurrence: FR)
  Receive Date: 20171020
  Receipt Date: 20171020
  Transmission Date: 20180321
  Serious: Yes (Other)
  Sender: FDA-Public Use
  Company Number: FR-MERCK KGAA-2030968

PATIENT
  Age: 57 Year
  Sex: Female

DRUGS (1)
  1. NOVOTHYROX [Suspect]
     Active Substance: LEVOTHYROXINE SODIUM
     Indication: HYPOTHYROIDISM
     Route: 048
     Dates: start: 201705, end: 20170824

REACTIONS (17)
  - Headache [Unknown]
  - Hair texture abnormal [Unknown]
  - Pyrexia [Unknown]
  - Chills [Unknown]
  - Poor quality sleep [Unknown]
  - Asthenia [Unknown]
  - Pain in extremity [Unknown]
  - Dehydration [Unknown]
  - Dry skin [Unknown]
  - Weight decreased [Unknown]
  - Abdominal pain [Unknown]
  - Amnesia [Unknown]
  - Blood thyroid stimulating hormone decreased [Unknown]
  - Nausea [Unknown]
  - Vision blurred [Unknown]
  - Gastrointestinal motility disorder [Unknown]
  - Oropharyngeal pain [Unknown]

NARRATIVE: CASE EVENT DATE: 201706
